FAERS Safety Report 16614814 (Version 2)
Quarter: 2019Q3

REPORT INFORMATION
  Report Type: Spontaneous
  Country: IE (occurrence: IE)
  Receive Date: 20190723
  Receipt Date: 20190808
  Transmission Date: 20191004
  Serious: Yes (Hospitalization)
  Sender: FDA-Public Use
  Company Number: IE-TEVA-2019-IE-1081038

PATIENT
  Age: 90 Year
  Sex: Female

DRUGS (5)
  1. CLARITHROMYCIN (GENERIC) [Suspect]
     Active Substance: CLARITHROMYCIN
     Indication: LOWER RESPIRATORY TRACT INFECTION
     Route: 048
     Dates: start: 20190531
  2. CLARITHROMYCIN (GENERIC) [Suspect]
     Active Substance: CLARITHROMYCIN
     Indication: OROPHARYNGEAL PAIN
  3. CLARITHROMYCIN (GENERIC) [Suspect]
     Active Substance: CLARITHROMYCIN
     Indication: PYREXIA
  4. PAROXETINE (GENERIC) [Concomitant]
     Indication: DEPRESSION
     Route: 048
     Dates: start: 20190531
  5. STILNOCT [Concomitant]
     Active Substance: ZOLPIDEM TARTRATE
     Indication: INSOMNIA
     Route: 048
     Dates: start: 20190531

REACTIONS (3)
  - Swollen tongue [Recovered/Resolved]
  - Lip swelling [Recovered/Resolved]
  - Erythema [Recovered/Resolved]

NARRATIVE: CASE EVENT DATE: 20190601
